FAERS Safety Report 21043782 (Version 1)
Quarter: 2022Q3

REPORT INFORMATION
  Report Type: Spontaneous
  Country: US (occurrence: None)
  Receive Date: 20220705
  Receipt Date: 20220705
  Transmission Date: 20221027
  Serious: Yes (Life-Threatening)
  Sender: FDA-Public Use
  Company Number: None

PATIENT
  Age: 43 Year
  Sex: Female
  Weight: 68.04 kg

DRUGS (3)
  1. RIFAMPIN [Suspect]
     Active Substance: RIFAMPIN
  2. ISONIAZID [Suspect]
     Active Substance: ISONIAZID
  3. RIFAPENTINE [Suspect]
     Active Substance: RIFAPENTINE
     Indication: Tuberculosis

REACTIONS (3)
  - Hypersensitivity [None]
  - Dyspepsia [None]
  - Lethargy [None]
